FAERS Safety Report 5957925-5 (Version None)
Quarter: 2008Q4

REPORT INFORMATION
  Report Type: 
  Country: None (occurrence: None)
  Receive Date: 20081119
  Receipt Date: 20081118
  Transmission Date: 20090506
  Serious: Yes (Life-Threatening, Hospitalization, Other)
  Sender: FDA-Public Use
  Company Number: US-RB-003070-08

PATIENT
  Age: 49 Year
  Sex: Female

DRUGS (2)
  1. BUPRENEX [Suspect]
     Route: 042
  2. SUBOXONE [Suspect]
     Dosage: DOSING INFORMATION UNKNOWN

REACTIONS (2)
  - PNEUMONIA [None]
  - RESPIRATORY FAILURE [None]
